FAERS Safety Report 24339488 (Version 1)
Quarter: 2024Q3

REPORT INFORMATION
  Report Type: Spontaneous
  Country: AU (occurrence: AU)
  Receive Date: 20240919
  Receipt Date: 20240919
  Transmission Date: 20241016
  Serious: Yes (Other)
  Sender: SERVIER
  Company Number: None

PATIENT

DRUGS (1)
  1. PEGASPARGASE [Suspect]
     Active Substance: PEGASPARGASE
     Indication: Product used for unknown indication
     Dosage: UNK
     Route: 065

REACTIONS (10)
  - Pancreatitis necrotising [Recovering/Resolving]
  - Encephalopathy [Recovering/Resolving]
  - Hyperbilirubinaemia [Recovering/Resolving]
  - Hypertriglyceridaemia [Recovering/Resolving]
  - Hyperglycaemia [Recovering/Resolving]
  - Pulmonary embolism [Recovering/Resolving]
  - Atrial thrombosis [Recovering/Resolving]
  - Jugular vein thrombosis [Recovering/Resolving]
  - Hyperammonaemia [Recovering/Resolving]
  - Transaminases increased [Recovering/Resolving]

NARRATIVE: CASE EVENT DATE: 20240513
